FAERS Safety Report 25478098 (Version 1)
Quarter: 2025Q2

REPORT INFORMATION
  Report Type: Spontaneous
  Country: BR (occurrence: BR)
  Receive Date: 20250625
  Receipt Date: 20250625
  Transmission Date: 20250716
  Serious: Yes (Other)
  Sender: BAYER HEALTHCARE PHARMACEUTICALS INC.
  Company Number: BR-BAYER-2025A080824

PATIENT
  Age: 68 Year
  Sex: Male
  Weight: 87 kg

DRUGS (5)
  1. NUBEQA [Suspect]
     Active Substance: DAROLUTAMIDE
     Indication: Prostate cancer
     Dosage: 4 TABLETS A DAY
     Dates: start: 20250101
  2. PREDNISONE [Concomitant]
     Active Substance: PREDNISONE
  3. AMIODARONE HYDROCHLORIDE [Concomitant]
     Active Substance: AMIODARONE HYDROCHLORIDE
  4. BISOPROLOL FUMARATE [Concomitant]
     Active Substance: BISOPROLOL FUMARATE
  5. APIXABAN [Concomitant]
     Active Substance: APIXABAN

REACTIONS (7)
  - Metastases to bone [None]
  - Dry eye [Unknown]
  - Nasal dryness [Unknown]
  - Eye inflammation [None]
  - Nasal inflammation [None]
  - Ocular hyperaemia [None]
  - Conjunctivitis [Recovering/Resolving]

NARRATIVE: CASE EVENT DATE: 20250101
